FAERS Safety Report 8807582 (Version 2)
Quarter: 2012Q4

REPORT INFORMATION
  Report Type: 
  Country: ES (occurrence: ES)
  Receive Date: 20120925
  Receipt Date: 20121004
  Transmission Date: 20130627
  Serious: Yes (Other)
  Sender: FDA-Public Use
  Company Number: ES-AMGEN-ESPSP2012060145

PATIENT
  Age: 54 Year
  Sex: Female
  Weight: 69 kg

DRUGS (3)
  1. ROMIPLOSTIM [Suspect]
     Indication: IDIOPATHIC THROMBOCYTOPENIC PURPURA
     Dosage: 1 mug/kg, UNK
     Dates: start: 200908, end: 201008
  2. ROMIPLOSTIM [Suspect]
     Dosage: 2 mug/kg, UNK
     Dates: start: 200908, end: 201008
  3. ROMIPLOSTIM [Suspect]
     Dosage: 3 mug/kg, UNK
     Dates: start: 200908, end: 201008

REACTIONS (1)
  - Therapeutic response decreased [Unknown]
